FAERS Safety Report 9271708 (Version 1)
Quarter: 2013Q2

REPORT INFORMATION
  Report Type: Spontaneous
  Country: US (occurrence: US)
  Receive Date: 20130506
  Receipt Date: 20130506
  Transmission Date: 20140414
  Serious: Yes (Death)
  Sender: FDA-Public Use
  Company Number: US-COVIDIEN/TYCO HEALTHCARE/MALLINCKRODT-T201300970

PATIENT
  Sex: Female

DRUGS (4)
  1. HYDROCODONE/ACETAMINOPHEN [Suspect]
     Indication: PAIN
     Dosage: 2-3 TABLETS PER DAY
     Dates: start: 201209
  2. METHADONE [Concomitant]
     Indication: PAIN
     Dosage: 10 MG, 2 TABS TID
  3. METHOCARBAMOL [Concomitant]
     Indication: PAIN
     Dosage: 750 MG TID
  4. DIAZEPAM [Concomitant]
     Dosage: 1000 MG BID

REACTIONS (1)
  - Laboratory test abnormal [Unknown]
